FAERS Safety Report 22021668 (Version 2)
Quarter: 2023Q1

REPORT INFORMATION
  Report Type: Report from Study
  Country: BR (occurrence: BR)
  Receive Date: 20230222
  Receipt Date: 20230302
  Transmission Date: 20230417
  Serious: Yes (Other)
  Sender: FDA-Public Use
  Company Number: BR-JNJFOC-20230237950

PATIENT
  Age: 17 Year
  Sex: Male
  Weight: 55 kg

DRUGS (1)
  1. REMICADE [Suspect]
     Active Substance: INFLIXIMAB
     Indication: Crohn^s disease
     Route: 041
     Dates: start: 20220207

REACTIONS (3)
  - Intestinal fistula [Unknown]
  - Intestinal stenosis [Unknown]
  - Gastrointestinal inflammation [Unknown]
